FAERS Safety Report 7323577-5 (Version None)
Quarter: 2011Q1

REPORT INFORMATION
  Report Type: 
  Country: None (occurrence: None)
  Receive Date: 20110301
  Receipt Date: 20110217
  Transmission Date: 20110831
  Serious: Yes (Other)
  Sender: FDA-Public Use
  Company Number: FR-KINGPHARMUSA00001-K201100179

PATIENT
  Age: 38 Year
  Sex: Female

DRUGS (7)
  1. ALTACE [Suspect]
     Dosage: 1.25 MG, QD
     Route: 048
  2. COZAAR [Concomitant]
     Dosage: 50 MG, QD
  3. LANTUS [Suspect]
     Indication: TYPE 1 DIABETES MELLITUS
     Dosage: 26 IU, UNK
  4. ALTACE [Suspect]
     Indication: NEPHROPATHY
     Dosage: 2.5 MG, QD
     Route: 048
     Dates: start: 20101006
  5. APIDRA [Suspect]
     Indication: DIABETES MELLITUS
     Dosage: 20 IU, TID
  6. CRESTOR [Concomitant]
     Dosage: 5 MG, QD
  7. METFORMIN [Concomitant]
     Dosage: 850 MG, BID

REACTIONS (3)
  - HYPOGLYCAEMIA [None]
  - SHOCK HYPOGLYCAEMIC [None]
  - DRUG INTERACTION [None]
